FAERS Safety Report 10609172 (Version 1)
Quarter: 2014Q4

REPORT INFORMATION
  Report Type: Spontaneous
  Country: FR (occurrence: FR)
  Receive Date: 20141126
  Receipt Date: 20141126
  Transmission Date: 20150529
  Serious: Yes (Hospitalization)
  Sender: FDA-Public Use
  Company Number: FR-009507513-1411FRA009084

PATIENT
  Age: 55 Year
  Sex: Male

DRUGS (23)
  1. RABEPRAZOLE SODIUM. [Suspect]
     Active Substance: RABEPRAZOLE SODIUM
     Dosage: 20 MG, QD, MYLAN PHARMA
     Dates: end: 20140923
  2. ESOMEPRAZOLE [Suspect]
     Active Substance: ESOMEPRAZOLE
     Dosage: 20 MG, QD
     Route: 048
     Dates: start: 20140918
  3. GLUCOPHAGE [Concomitant]
     Active Substance: METFORMIN HYDROCHLORIDE
     Dosage: 1000 MG, QD
  4. GABAPENTIN. [Concomitant]
     Active Substance: GABAPENTIN
     Dosage: UNK
     Dates: start: 200903, end: 20140911
  5. ONDANSETRON [Suspect]
     Active Substance: ONDANSETRON
     Indication: NAUSEA
     Dosage: 16 MG, QD
     Dates: start: 20140918, end: 20140918
  6. MOTILIUM [Suspect]
     Active Substance: DOMPERIDONE
     Indication: NAUSEA
     Dosage: 10 MG, TID
     Route: 048
     Dates: start: 20140918, end: 20140923
  7. LAROXYL [Concomitant]
     Active Substance: AMITRIPTYLINE
     Dosage: 25 MG, QD
  8. CISPLATIN. [Suspect]
     Active Substance: CISPLATIN
     Indication: LUNG ADENOCARCINOMA
     Dosage: 71.2 MG, UNK
     Route: 042
     Dates: start: 20140918, end: 20140918
  9. ZAMUDOL [Suspect]
     Active Substance: TRAMADOL HYDROCHLORIDE
     Indication: PAIN
     Dosage: 50 MG, QD
     Route: 048
     Dates: end: 20140923
  10. LEVOTHYROX [Concomitant]
     Active Substance: LEVOTHYROXINE
     Dosage: 150 MICROGRAM, QD
  11. DOMPERIDONE [Suspect]
     Active Substance: DOMPERIDONE
     Indication: NAUSEA
     Dosage: 40 MG, QD
     Route: 048
     Dates: end: 20140923
  12. RAMIPRIL EG [Concomitant]
     Active Substance: RAMIPRIL
     Dosage: 2.5 MG, QD
  13. EUCREAS [Concomitant]
     Active Substance: METFORMIN HYDROCHLORIDE\VILDAGLIPTIN
     Dosage: 100000 U, QD
  14. MODOPAR [Suspect]
     Active Substance: BENSERAZIDE HYDROCHLORIDE\LEVODOPA
     Indication: RESTLESS LEGS SYNDROME
     Dosage: 62.5 MG, QD
     Route: 048
     Dates: start: 20140917, end: 20140923
  15. NAVELBINE [Suspect]
     Active Substance: VINORELBINE TARTRATE
     Indication: LUNG ADENOCARCINOMA
     Dosage: 26.7 MG, UNK
     Route: 042
     Dates: start: 20140918, end: 20140918
  16. PLAVIX [Concomitant]
     Active Substance: CLOPIDOGREL BISULFATE
     Dosage: 75 MG, QD
  17. SIFROL [Concomitant]
     Active Substance: PRAMIPEXOLE
     Dosage: 0.54 MG, QD
     Dates: start: 201112
  18. EMEND [Suspect]
     Active Substance: APREPITANT
     Indication: NAUSEA
     Dosage: 125 MG, QD
     Route: 048
     Dates: start: 20140918, end: 20140918
  19. EMEND [Suspect]
     Active Substance: APREPITANT
     Dosage: 80 MG, QD
     Route: 048
     Dates: start: 20140919, end: 20140920
  20. OXYNORM [Suspect]
     Active Substance: OXYCODONE HYDROCHLORIDE
     Indication: PAIN
     Dosage: 5 MG, TID
     Route: 048
     Dates: start: 20140918, end: 20140923
  21. CONTRAMAL [Suspect]
     Active Substance: TRAMADOL HYDROCHLORIDE
     Indication: PAIN
     Dosage: 50 MG, TID
     Route: 048
     Dates: start: 20140918, end: 20140923
  22. DIAMICRON [Concomitant]
     Active Substance: GLICLAZIDE
     Dosage: 60 MG, QD
  23. PRAVASTATIN SODIUM. [Concomitant]
     Active Substance: PRAVASTATIN SODIUM
     Dosage: 40 MG, QD

REACTIONS (1)
  - Hepatitis fulminant [Recovered/Resolved]

NARRATIVE: CASE EVENT DATE: 20140923
